FAERS Safety Report 7378702-7 (Version None)
Quarter: 2011Q1

REPORT INFORMATION
  Report Type: 
  Country: None (occurrence: None)
  Receive Date: 20110317
  Receipt Date: 20110303
  Transmission Date: 20110831
  Serious: Yes (Other)
  Sender: FDA-Public Use
  Company Number: 2011SP010771

PATIENT
  Age: 30 Year
  Sex: Female
  Weight: 59 kg

DRUGS (2)
  1. NUVARING [Suspect]
     Indication: CONTRACEPTION
     Dosage: VAG
     Dates: start: 20060101
  2. HYPERICUM (HYPERICUM PERFORATUM/01166801/) [Suspect]
     Indication: MOOD ALTERED

REACTIONS (5)
  - DRUG INTERACTION [None]
  - METRORRHAGIA [None]
  - CROHN'S DISEASE [None]
  - VITAMIN D DEFICIENCY [None]
  - MOOD ALTERED [None]
